FAERS Safety Report 23934962 (Version 2)
Quarter: 2024Q3

REPORT INFORMATION
  Report Type: Report from Study
  Country: US (occurrence: US)
  Receive Date: 20240604
  Receipt Date: 20240702
  Transmission Date: 20241017
  Serious: Yes (Other)
  Sender: ABBVIE
  Company Number: US-ABBVIE-5783874

PATIENT
  Age: 63 Year
  Sex: Female

DRUGS (1)
  1. HUMIRA [Suspect]
     Active Substance: ADALIMUMAB
     Indication: Rheumatoid arthritis
     Route: 058
     Dates: start: 20220923

REACTIONS (8)
  - Loss of consciousness [Recovering/Resolving]
  - Asthenia [Recovering/Resolving]
  - Blood pressure abnormal [Recovering/Resolving]
  - Peripheral swelling [Recovering/Resolving]
  - Knee operation [Unknown]
  - Dizziness [Recovering/Resolving]
  - Post procedural swelling [Recovering/Resolving]
  - Joint swelling [Recovering/Resolving]

NARRATIVE: CASE EVENT DATE: 20240501
